FAERS Safety Report 6509494-9 (Version None)
Quarter: 2009Q4

REPORT INFORMATION
  Report Type: 
  Country: None (occurrence: None)
  Receive Date: 20091222
  Receipt Date: 20091215
  Transmission Date: 20100525
  Serious: Yes (Hospitalization)
  Sender: FDA-Public Use
  Company Number: US-BRISTOL-MYERS SQUIBB COMPANY-14896401

PATIENT
  Age: 66 Year
  Sex: Female
  Weight: 61 kg

DRUGS (7)
  1. DASATINIB [Suspect]
     Indication: CHRONIC MYELOID LEUKAEMIA
     Route: 048
     Dates: start: 20090109, end: 20091123
  2. METFORMIN HCL [Suspect]
  3. DIOVAN [Suspect]
  4. ACTOS [Concomitant]
  5. LORAZEPAM [Concomitant]
  6. PAXIL [Concomitant]
  7. PRAVASTATIN SODIUM [Concomitant]

REACTIONS (6)
  - FATIGUE [None]
  - HEADACHE [None]
  - HYPERTENSION [None]
  - NAUSEA [None]
  - PLEURAL EFFUSION [None]
  - WEIGHT DECREASED [None]
